FAERS Safety Report 11300367 (Version 2)
Quarter: 2015Q3

REPORT INFORMATION
  Report Type: Spontaneous
  Country: US (occurrence: US)
  Receive Date: 20150722
  Receipt Date: 20150818
  Transmission Date: 20151125
  Serious: No
  Sender: FDA-Public Use
  Company Number: US-ELI_LILLY_AND_COMPANY-US201310001997

PATIENT
  Sex: Male

DRUGS (2)
  1. HUMATROPE [Suspect]
     Active Substance: SOMATROPIN
     Indication: ASTHENIA
     Dosage: UNK
     Route: 065
     Dates: start: 2008
  2. HUMATROPE [Suspect]
     Active Substance: SOMATROPIN
     Indication: FATIGUE

REACTIONS (2)
  - Accidental overdose [Recovered/Resolved]
  - Off label use [Not Recovered/Not Resolved]
